FAERS Safety Report 5587673-5 (Version None)
Quarter: 2007Q4

REPORT INFORMATION
  Report Type: 
  Country: None (occurrence: None)
  Receive Date: 20071206
  Receipt Date: 20070727
  Transmission Date: 20080405
  Serious: Yes (Hospitalization, Disabling, Other)
  Sender: FDA-Public Use
  Company Number: WAES 0707USA04548

PATIENT
  Age: 59 Year
  Sex: Female
  Weight: 162.3877 kg

DRUGS (3)
  1. CLINORIL [Suspect]
     Dosage: 200 MG/BID/PO
     Route: 048
     Dates: end: 20070701
  2. INJ ARIXTRA 2.5 MG [Suspect]
     Indication: THROMBOSIS PROPHYLAXIS
     Dosage: 2.5 MG/DAILY/SC
     Route: 058
     Dates: start: 20070626, end: 20070701
  3. ASPIRIN [Suspect]

REACTIONS (1)
  - PEPTIC ULCER HAEMORRHAGE [None]
